FAERS Safety Report 11749858 (Version 1)
Quarter: 2015Q4

REPORT INFORMATION
  Report Type: Spontaneous
  Country: US (occurrence: None)
  Receive Date: 20151117
  Receipt Date: 20151117
  Transmission Date: 20160304
  Serious: Yes (Disabling, Other)
  Sender: FDA-Public Use
  Company Number: None

PATIENT
  Age: 33 Year
  Sex: Female
  Weight: 68.04 kg

DRUGS (6)
  1. VITAMIN D [Concomitant]
     Active Substance: CHOLECALCIFEROL
  2. CIPROFLOXACIN. [Suspect]
     Active Substance: CIPROFLOXACIN
     Indication: URINARY TRACT INFECTION
     Route: 048
  3. LITHIUM. [Concomitant]
     Active Substance: LITHIUM
  4. ADDERALL [Concomitant]
     Active Substance: AMPHETAMINE ASPARTATE\AMPHETAMINE SULFATE\DEXTROAMPHETAMINE SACCHARATE\DEXTROAMPHETAMINE SULFATE
  5. NUVIGIL [Concomitant]
     Active Substance: ARMODAFINIL
  6. CALCIUM [Concomitant]
     Active Substance: CALCIUM

REACTIONS (12)
  - Nervous system disorder [None]
  - Mental impairment [None]
  - Somnolence [None]
  - Fear [None]
  - Bipolar disorder [None]
  - Urticaria [None]
  - Paranoia [None]
  - Immunosuppression [None]
  - Pain [None]
  - Mental disorder [None]
  - Hallucination, visual [None]
  - Major depression [None]

NARRATIVE: CASE EVENT DATE: 20110815
